FAERS Safety Report 12476481 (Version 1)
Quarter: 2016Q2

REPORT INFORMATION
  Report Type: Not Available
  Country: None (occurrence: US)
  Receive Date: 20160617
  Receipt Date: 20160617
  Transmission Date: 20160815
  Serious: Yes (Hospitalization, Other)
  Sender: FDA-Public Use
  Company Number: US-AKORN-32816

PATIENT
  Age: 54 Year
  Sex: Female

DRUGS (1)
  1. COGENTIN [Suspect]
     Active Substance: BENZTROPINE MESYLATE

REACTIONS (3)
  - Arteriospasm coronary [Unknown]
  - Muscle twitching [Unknown]
  - Angina pectoris [Unknown]
